FAERS Safety Report 8019311-6 (Version None)
Quarter: 2012Q1

REPORT INFORMATION
  Report Type: 
  Country: None (occurrence: None)
  Receive Date: 20120103
  Receipt Date: 20111220
  Transmission Date: 20120608
  Serious: Yes (Other)
  Sender: FDA-Public Use
  Company Number: GB-TEVA-305970ISR

PATIENT
  Age: 35 Year
  Weight: 66.3 kg

DRUGS (2)
  1. FOLIC ACID [Concomitant]
     Indication: GASTRIC BANDING
     Dosage: ONGOING
     Route: 048
     Dates: start: 20100104
  2. AMITRIPTYLINE HCL [Suspect]
     Indication: MIGRAINE
     Dosage: AT NIGHT
     Route: 048
     Dates: start: 20110506, end: 20110901

REACTIONS (1)
  - AMNESIA [None]
